FAERS Safety Report 22223491 (Version 1)
Quarter: 2023Q2

REPORT INFORMATION
  Report Type: Spontaneous
  Country: US (occurrence: None)
  Receive Date: 20230417
  Receipt Date: 20230417
  Transmission Date: 20230722
  Serious: Yes (Hospitalization)
  Sender: FDA-Public Use
  Company Number: None

PATIENT
  Age: 53 Year
  Sex: Male
  Weight: 70.4 kg

DRUGS (12)
  1. ABIRATERONE [Suspect]
     Active Substance: ABIRATERONE
     Indication: Prostate cancer
     Dosage: FREQUENCY : DAILY;?
     Route: 048
     Dates: start: 20221107
  2. ALLOPRUINOL [Concomitant]
  3. CEFEPIME [Concomitant]
     Active Substance: CEFEPIME HYDROCHLORIDE
  4. HYDROCODONE [Concomitant]
     Active Substance: HYDROCODONE
  5. LINEZOLID [Concomitant]
     Active Substance: LINEZOLID
  6. MAGNESIUM CITRATE [Concomitant]
     Active Substance: MAGNESIUM CITRATE
  7. OXYBUTYNIN [Concomitant]
     Active Substance: OXYBUTYNIN
  8. PANTOPRAZOLE [Concomitant]
     Active Substance: PANTOPRAZOLE
  9. HIGH DENSITY POLYETHYLENE [Concomitant]
     Active Substance: HIGH DENSITY POLYETHYLENE
  10. PREDNISONE [Concomitant]
     Active Substance: PREDNISONE
  11. TAMSULOSIN [Concomitant]
     Active Substance: TAMSULOSIN
  12. XANAX [Concomitant]
     Active Substance: ALPRAZOLAM

REACTIONS (1)
  - Clostridium difficile infection [None]
